FAERS Safety Report 9148063 (Version 2)
Quarter: 2013Q2

REPORT INFORMATION
  Report Type: Spontaneous
  Country: US (occurrence: US)
  Receive Date: 20130308
  Receipt Date: 20130503
  Transmission Date: 20140414
  Serious: No
  Sender: FDA-Public Use
  Company Number: US-009507513-1303USA002265

PATIENT
  Sex: Female

DRUGS (8)
  1. AZASITE [Suspect]
     Indication: CONJUNCTIVITIS
     Dosage: 1 GTT, TID EACH EYE
     Route: 047
     Dates: start: 20130222
  2. FLUOROMETHOLONE [Concomitant]
  3. AMLODIPINE BESYLATE [Concomitant]
  4. ASPIRIN [Concomitant]
  5. METOPROLOL [Concomitant]
  6. SYNTHROID [Concomitant]
  7. PRAVASTATIN SODIUM [Concomitant]
  8. VITAMINS (UNSPECIFIED) [Concomitant]

REACTIONS (3)
  - Ocular hyperaemia [Not Recovered/Not Resolved]
  - Drug dispensing error [Unknown]
  - Eye pruritus [Not Recovered/Not Resolved]
